FAERS Safety Report 11343264 (Version 1)
Quarter: 2015Q3

REPORT INFORMATION
  Report Type: Spontaneous
  Country: JP (occurrence: JP)
  Receive Date: 20150806
  Receipt Date: 20150806
  Transmission Date: 20151125
  Serious: Yes (Life-Threatening, Other)
  Sender: FDA-Public Use
  Company Number: JP-ASTRAZENECA-2015SE74993

PATIENT
  Age: 65 Year
  Sex: Male

DRUGS (1)
  1. MEROPENEM. [Suspect]
     Active Substance: MEROPENEM
     Indication: ANTIBIOTIC THERAPY
     Route: 042

REACTIONS (5)
  - Septic shock [Unknown]
  - Agranulocytosis [Recovered/Resolved]
  - Clostridial infection [Unknown]
  - Oro-pharyngeal aspergillosis [Recovered/Resolved]
  - Candida infection [Recovered/Resolved]
